FAERS Safety Report 8374509-2 (Version None)
Quarter: 2012Q2

REPORT INFORMATION
  Report Type: 
  Country: None (occurrence: None)
  Receive Date: 20120521
  Receipt Date: 20120514
  Transmission Date: 20120825
  Serious: Yes (Hospitalization)
  Sender: FDA-Public Use
  Company Number: FR-FRI-1000030598

PATIENT
  Sex: Male

DRUGS (5)
  1. INNOHEP [Concomitant]
  2. ZOLPIDEM TARTRATE [Concomitant]
  3. CORDARONE [Suspect]
     Route: 048
     Dates: start: 20101110, end: 20101116
  4. PANTOPRAZOLE [Concomitant]
  5. NEBIVOLOL [Suspect]
     Dosage: 1.25 MG
     Route: 048
     Dates: start: 20101001, end: 20101116

REACTIONS (1)
  - LUNG DISORDER [None]
